FAERS Safety Report 9219411 (Version 1)
Quarter: 2013Q2

REPORT INFORMATION
  Report Type: Spontaneous
  Country: US (occurrence: None)
  Receive Date: 20130408
  Receipt Date: 20130408
  Transmission Date: 20140414
  Serious: No
  Sender: FDA-Public Use
  Company Number: None

PATIENT
  Sex: 0

DRUGS (2)
  1. COMBIGAN [Suspect]
     Indication: DRUG HYPERSENSITIVITY
  2. COMBIGAN [Suspect]
     Indication: GLAUCOMA

REACTIONS (2)
  - Iritis [None]
  - Eye irritation [None]
